FAERS Safety Report 6287997-2 (Version None)
Quarter: 2009Q3

REPORT INFORMATION
  Report Type: 
  Country: None (occurrence: None)
  Receive Date: 20090729
  Receipt Date: 20090717
  Transmission Date: 20100115
  Serious: Yes (Hospitalization)
  Sender: FDA-Public Use
  Company Number: AU-ROCHE-513988

PATIENT
  Sex: Male
  Weight: 75.2 kg

DRUGS (14)
  1. CAPECITABINE [Suspect]
     Indication: COLON CANCER
     Route: 048
     Dates: start: 20070809, end: 20070822
  2. BEVACIZUMAB [Suspect]
     Indication: COLON CANCER
     Route: 042
     Dates: start: 20070809, end: 20070809
  3. BEVACIZUMAB [Suspect]
     Dosage: PATIENT COMPLETED 16 CYCLES ON 09 JULY 2008.
     Route: 042
     Dates: start: 20070919, end: 20080709
  4. MIXTARD HUMAN 70/30 [Suspect]
     Dosage: DOSE REPORTED AS 75.  UNITS: ILLEGIBLE.
     Route: 058
     Dates: start: 20020101
  5. ACETAMINOPHEN W/ CODEINE [Concomitant]
     Indication: PAIN
     Route: 048
     Dates: start: 20070825, end: 20070825
  6. ATENOLOL [Suspect]
     Indication: HYPERTENSION
     Route: 048
     Dates: start: 20050101
  7. GLIBENCLAMIDE [Concomitant]
     Indication: DRUG THERAPY
     Route: 048
  8. SPIRONOLACTONE [Suspect]
     Route: 048
     Dates: start: 20050101
  9. ESOMEPRAZOLE MAGNESIUM [Suspect]
     Indication: ILL-DEFINED DISORDER
     Route: 048
     Dates: start: 20070601
  10. MAGNESIUM ASPARTATE [Concomitant]
     Indication: MAGNESIUM DEFICIENCY
     Route: 048
     Dates: start: 20070830, end: 20070830
  11. CALCIUM CARBONATE [Concomitant]
     Indication: CALCIUM DEFICIENCY
     Route: 048
     Dates: start: 20070902, end: 20070907
  12. SODIUM ACID PHOSPHATE [Concomitant]
     Indication: ELECTROLYTE IMBALANCE
     Route: 048
     Dates: start: 20070902, end: 20070905
  13. CYANOCOBALAMIN [Concomitant]
     Route: 030
     Dates: start: 20070904, end: 20070904
  14. GLYBURIDE AND METFORMIN HYDROCHLORIDE [Suspect]
     Dosage: DOSE REPORTED AS: 500MG/5MG
     Route: 050
     Dates: start: 19950101, end: 20070830

REACTIONS (1)
  - HYPERGLYCAEMIA [None]
